FAERS Safety Report 23643838 (Version 2)
Quarter: 2024Q1

REPORT INFORMATION
  Report Type: Spontaneous
  Country: US (occurrence: US)
  Receive Date: 20240318
  Receipt Date: 20240328
  Transmission Date: 20240410
  Serious: No
  Sender: FDA-Public Use
  Company Number: US-Calliditas-2024CAL00406

PATIENT
  Age: 64 Year
  Sex: Female

DRUGS (11)
  1. TARPEYO [Suspect]
     Active Substance: BUDESONIDE
     Indication: Haematuria
     Route: 048
     Dates: start: 20240223, end: 20240307
  2. HYGROTON [Concomitant]
     Active Substance: CHLORTHALIDONE
     Route: 048
  3. FARXIGA [Concomitant]
     Active Substance: DAPAGLIFLOZIN PROPANEDIOL
     Route: 048
  4. SYNTHROID [Concomitant]
     Active Substance: LEVOTHYROXINE SODIUM
     Route: 048
  5. COZAAR [Concomitant]
     Active Substance: LOSARTAN POTASSIUM
     Route: 048
  6. BACTROBAN [Concomitant]
     Active Substance: MUPIROCIN CALCIUM
     Dosage: APPLY 2-3 TIMES DAILY TO INFECTED SKIN FOR 5 TO 7 DAYS
  7. ZYPREXA [Concomitant]
     Active Substance: OLANZAPINE
     Route: 048
  8. PRISTIQ EXTENDED-RELEASE [Concomitant]
     Active Substance: DESVENLAFAXINE SUCCINATE
     Route: 048
  9. SEROQUEL [Concomitant]
     Active Substance: QUETIAPINE FUMARATE
     Route: 048
  10. VALTREX [Concomitant]
     Active Substance: VALACYCLOVIR HYDROCHLORIDE
     Route: 048
  11. AMLODIPINE [Concomitant]
     Active Substance: AMLODIPINE BESYLATE
     Route: 048

REACTIONS (15)
  - Symmetrical drug-related intertriginous and flexural exanthema [Unknown]
  - Asthenia [Unknown]
  - Decreased appetite [Unknown]
  - Hypophagia [Unknown]
  - Dizziness postural [Unknown]
  - Aphonia [Unknown]
  - Nasal disorder [Unknown]
  - Drug hypersensitivity [Unknown]
  - Glomerular filtration rate decreased [Unknown]
  - Urine albumin/creatinine ratio increased [Unknown]
  - Urine protein/creatinine ratio increased [Unknown]
  - Blood bicarbonate decreased [Unknown]
  - Anion gap increased [Unknown]
  - Hyponatraemia [Unknown]
  - Blood pressure decreased [Unknown]

NARRATIVE: CASE EVENT DATE: 20240301
